FAERS Safety Report 6120109-4 (Version None)
Quarter: 2009Q1

REPORT INFORMATION
  Report Type: 
  Country: None (occurrence: None)
  Receive Date: 20090312
  Receipt Date: 20090227
  Transmission Date: 20090719
  Serious: Yes (Hospitalization)
  Sender: FDA-Public Use
  Company Number: 2008AL008715

PATIENT
  Age: 77 Year
  Sex: Female

DRUGS (20)
  1. DIGOXIN [Suspect]
     Indication: ATRIAL FIBRILLATION
     Dosage: 0.125MG, DAILY, PO
     Route: 048
  2. SPIRIVA [Concomitant]
  3. XOPENEX [Concomitant]
  4. TRIAMTERANE [Concomitant]
  5. VERAPAMIL [Concomitant]
  6. GABAPENTIN [Concomitant]
  7. SYMBICORT [Concomitant]
  8. VENTOLIN [Concomitant]
  9. ATIVAN [Concomitant]
  10. OXYCODONE HCL [Concomitant]
  11. TYLENOL [Concomitant]
  12. LEVOFLOXACIN [Concomitant]
  13. ALBUTEROL [Concomitant]
  14. ENOXAPARIN [Concomitant]
  15. DARVOCET [Concomitant]
  16. NEURONTIN [Concomitant]
  17. PREVACID [Concomitant]
  18. QVAR INHALER [Concomitant]
  19. MULTI-VITAMIN [Concomitant]
  20. NAPROSYN [Concomitant]

REACTIONS (23)
  - ADRENAL MASS [None]
  - ASTHENIA [None]
  - ATRIAL FIBRILLATION [None]
  - BRADYCARDIA [None]
  - CARDIOACTIVE DRUG LEVEL INCREASED [None]
  - CELLULITIS [None]
  - DECREASED APPETITE [None]
  - DEHYDRATION [None]
  - DIARRHOEA [None]
  - DIZZINESS [None]
  - DYSPNOEA [None]
  - FATIGUE [None]
  - GASTROINTESTINAL HAEMORRHAGE [None]
  - LEUKOCYTOSIS [None]
  - LUNG NEOPLASM [None]
  - MALAISE [None]
  - NAUSEA [None]
  - NEUROPATHY PERIPHERAL [None]
  - PRESYNCOPE [None]
  - PYREXIA [None]
  - THERAPEUTIC AGENT TOXICITY [None]
  - VOMITING [None]
  - WEIGHT DECREASED [None]
